FAERS Safety Report 10010078 (Version 1)
Quarter: 2014Q1

REPORT INFORMATION
  Report Type: Spontaneous
  Country: US (occurrence: US)
  Receive Date: 20140312
  Receipt Date: 20140312
  Transmission Date: 20141002
  Serious: No
  Sender: FDA-Public Use
  Company Number: US-INCYTE CORPORATION-2013IN001007

PATIENT
  Sex: Female

DRUGS (10)
  1. JAKAFI [Suspect]
     Indication: MYELOFIBROSIS
     Dosage: 20 MG, BID
     Route: 048
     Dates: start: 20130319
  2. PLAVIX [Concomitant]
  3. METOPROLOL [Concomitant]
  4. ULORIC [Concomitant]
  5. COZAAR [Concomitant]
  6. LASIX [Concomitant]
  7. TRAZODONE [Concomitant]
  8. PROTONIX [Concomitant]
  9. XANAX [Concomitant]
  10. LEXAPRO [Concomitant]

REACTIONS (4)
  - Increased appetite [Unknown]
  - Weight increased [Unknown]
  - Headache [Unknown]
  - Anaemia [Unknown]
